FAERS Safety Report 4736772-6 (Version None)
Quarter: 2005Q3

REPORT INFORMATION
  Report Type: 
  Country: None (occurrence: None)
  Receive Date: 20050808
  Receipt Date: 20050309
  Transmission Date: 20060218
  Serious: Yes (Other)
  Sender: FDA-Public Use
  Company Number: US-MERCK-0503USA02064

PATIENT
  Age: 63 Year
  Sex: Female
  Weight: 86 kg

DRUGS (8)
  1. VIOXX [Suspect]
     Indication: ARTHRITIS
     Route: 048
     Dates: start: 20010620, end: 20030301
  2. VIOXX [Suspect]
     Route: 048
  3. VIOXX [Suspect]
     Route: 048
  4. MIRALAX [Concomitant]
     Route: 065
  5. GLUCOTROL [Concomitant]
     Route: 065
  6. AUGMENTIN '125' [Concomitant]
     Route: 065
  7. PROVENTIL [Concomitant]
     Route: 065
  8. GLIPIZIDE [Concomitant]
     Route: 065

REACTIONS (3)
  - MUSCULOSKELETAL PAIN [None]
  - MYOCARDIAL INFARCTION [None]
  - POLYTRAUMATISM [None]
